FAERS Safety Report 8336889-3 (Version None)
Quarter: 2012Q2

REPORT INFORMATION
  Report Type: 
  Country: None (occurrence: None)
  Receive Date: 20120504
  Receipt Date: 20120424
  Transmission Date: 20120825
  Serious: Yes (Other)
  Sender: FDA-Public Use
  Company Number: PHHY2012RS037757

PATIENT
  Sex: Female

DRUGS (2)
  1. AMOXICILLIN [Suspect]
     Indication: TONSILLITIS STREPTOCOCCAL
     Dosage: UNK
     Route: 048
     Dates: start: 20120406, end: 20120406
  2. FEBRICET [Concomitant]

REACTIONS (4)
  - HYPERAEMIA [None]
  - PERIORBITAL OEDEMA [None]
  - LACRIMATION INCREASED [None]
  - RASH [None]
